FAERS Safety Report 7528031-3 (Version None)
Quarter: 2011Q2

REPORT INFORMATION
  Report Type: 
  Country: None (occurrence: None)
  Receive Date: 20110607
  Receipt Date: 20090216
  Transmission Date: 20111010
  Serious: Yes (Other)
  Sender: FDA-Public Use
  Company Number: US-BAYER-200913074NA

PATIENT
  Age: 67 Year
  Sex: Female
  Weight: 73 kg

DRUGS (23)
  1. TRASYLOL [Suspect]
     Indication: MITRAL VALVE REPLACEMENT
  2. ACETAMINOPHEN [Concomitant]
     Dosage: 650 MG, QD
     Route: 048
     Dates: end: 20030716
  3. VANCOMYCIN [Concomitant]
     Dosage: UNK
     Dates: start: 20030723
  4. AZACTAM [Concomitant]
     Dosage: UNK
     Dates: start: 20030801
  5. HEPARIN [Concomitant]
     Dosage: UNK
     Route: 042
     Dates: start: 20030711, end: 20030718
  6. PLASMA [Concomitant]
     Dosage: 4 U, ONCE
     Route: 042
     Dates: start: 20030718
  7. TRASYLOL [Suspect]
     Indication: CORONARY ARTERY BYPASS
     Dosage: 200 ML X 3 DOSES
     Route: 042
     Dates: start: 20030718, end: 20030718
  8. LOPID [Concomitant]
     Dosage: 600 MG, BID
     Route: 048
     Dates: end: 20030716
  9. ZINACEF [Concomitant]
     Dosage: UNK
     Route: 042
     Dates: start: 20030718
  10. PLATELETS [Concomitant]
     Dosage: 7
     Route: 042
     Dates: start: 20030718
  11. LASIX [Concomitant]
     Dosage: 80
     Route: 042
     Dates: start: 20030714, end: 20030714
  12. LASIX [Concomitant]
     Dosage: 60 MG
     Route: 042
     Dates: start: 20030717, end: 20030717
  13. LEVOPHED [Concomitant]
     Dosage: 16/250
     Route: 042
     Dates: start: 20030717
  14. RED BLOOD CELLS [Concomitant]
     Dosage: 6 U, ONCE
     Route: 042
     Dates: start: 20030718
  15. MICARDIS [Concomitant]
     Dosage: 80 MG, QD
     Route: 048
     Dates: end: 20030716
  16. LOPRESSOR [Concomitant]
     Dosage: 25 MG, TID
     Route: 048
     Dates: start: 20030716
  17. RED BLOOD CELLS [Concomitant]
     Dosage: 1 UNIT
     Route: 042
     Dates: start: 20030722
  18. TRASYLOL [Suspect]
     Indication: ARTERIAL REPAIR
  19. DOBUTREX [Concomitant]
     Dosage: 5MCG/KG/MIN
     Route: 042
     Dates: start: 20030716
  20. PROTONIX [Concomitant]
     Dosage: 40 MG, QD
     Route: 048
     Dates: start: 20030716
  21. ZETIA [Concomitant]
     Dosage: 10 DAILY
     Route: 048
     Dates: start: 20030716
  22. AMIODARONE HCL [Concomitant]
     Dosage: 1 MG/MIN
     Route: 042
     Dates: start: 20030717
  23. FLUCONAZOLE [Concomitant]
     Dosage: UNK
     Dates: start: 20030723

REACTIONS (8)
  - RENAL FAILURE [None]
  - ANXIETY [None]
  - INJURY [None]
  - FEAR [None]
  - UNEVALUABLE EVENT [None]
  - DEPRESSION [None]
  - PAIN [None]
  - ANHEDONIA [None]
